FAERS Safety Report 23251911 (Version 1)
Quarter: 2023Q4

REPORT INFORMATION
  Report Type: Spontaneous
  Country: US (occurrence: None)
  Receive Date: 20231130
  Receipt Date: 20231130
  Transmission Date: 20240110
  Serious: Yes (Hospitalization)
  Sender: FDA-Public Use
  Company Number: None

PATIENT
  Age: 3 Year
  Sex: Female

DRUGS (1)
  1. VIGABATRIN [Suspect]
     Active Substance: VIGABATRIN
     Indication: Seizure
     Dosage: OTHER QUANTITY : 1 PACKET ;?FREQUENCY : TWICE A DAY;?
     Route: 048
     Dates: start: 202105

REACTIONS (2)
  - Product use issue [None]
  - Seizure [None]

NARRATIVE: CASE EVENT DATE: 20231129
